FAERS Safety Report 6518265-9 (Version None)
Quarter: 2009Q4

REPORT INFORMATION
  Report Type: 
  Country: None (occurrence: None)
  Receive Date: 20091222
  Receipt Date: 20091222
  Transmission Date: 20100525
  Serious: No
  Sender: FDA-Public Use
  Company Number: None

PATIENT
  Age: 44 Year
  Sex: Male
  Weight: 89.8122 kg

DRUGS (2)
  1. LAMOTRIGINE [Suspect]
     Indication: CONVULSION
     Dosage: 150 MG BID PO
     Route: 048
  2. LAMOTRIGINE [Suspect]
     Indication: CONVULSION
     Dosage: 50 MG QHS PO
     Route: 048

REACTIONS (1)
  - CONVULSION [None]
